FAERS Safety Report 26179009 (Version 1)
Quarter: 2025Q4

REPORT INFORMATION
  Report Type: Spontaneous
  Country: AU (occurrence: AU)
  Receive Date: 20251219
  Receipt Date: 20251219
  Transmission Date: 20260118
  Serious: Yes (Other)
  Sender: RANBAXY
  Company Number: AU-SUN PHARMACEUTICAL INDUSTRIES INC-2025R1-522830

PATIENT
  Age: 21 Year
  Sex: Female

DRUGS (1)
  1. ZONISAMIDE [Suspect]
     Active Substance: ZONISAMIDE
     Indication: Spasmodic dysphonia
     Dosage: 150 MILLIGRAM, QD
     Route: 065

REACTIONS (2)
  - Drug intolerance [Unknown]
  - Neuropsychological symptoms [Recovering/Resolving]
